FAERS Safety Report 26080057 (Version 1)
Quarter: 2025Q4

REPORT INFORMATION
  Report Type: Report from Study
  Country: US (occurrence: US)
  Receive Date: 20251124
  Receipt Date: 20251124
  Transmission Date: 20260118
  Serious: Yes (Other)
  Sender: JOHNSON AND JOHNSON
  Company Number: US-JNJFOC-20251164880

PATIENT
  Age: 60 Year
  Sex: Male

DRUGS (2)
  1. SPRAVATO [Suspect]
     Active Substance: ESKETAMINE
     Indication: Depression
     Dosage: ?84 MG, 9 TOTAL DOSES?
     Route: 045
     Dates: start: 20250612, end: 20250915
  2. SPRAVATO [Suspect]
     Active Substance: ESKETAMINE
     Dosage: ?56 MG, 8 TOTAL DOSES?
     Route: 045
     Dates: start: 20250430, end: 20250528

REACTIONS (2)
  - Myocardial infarction [Unknown]
  - Adverse event [Unknown]

NARRATIVE: CASE EVENT DATE: 20250101
